FAERS Safety Report 5709034-8 (Version None)
Quarter: 2008Q2

REPORT INFORMATION
  Report Type: 
  Country: None (occurrence: None)
  Receive Date: 20080416
  Receipt Date: 20080416
  Transmission Date: 20081010
  Serious: Yes (Hospitalization)
  Sender: FDA-Public Use
  Company Number: None

PATIENT
  Sex: Male
  Weight: 72.7 kg

DRUGS (1)
  1. CISPLATIN [Suspect]
     Dosage: 197 MG
     Dates: end: 20071224

REACTIONS (4)
  - NAUSEA [None]
  - ODYNOPHAGIA [None]
  - PAIN [None]
  - WEIGHT DECREASED [None]
